FAERS Safety Report 13577112 (Version 3)
Quarter: 2017Q4

REPORT INFORMATION
  Report Type: Spontaneous
  Country: BR (occurrence: BR)
  Receive Date: 20170524
  Receipt Date: 20171205
  Transmission Date: 20180320
  Serious: Yes (Death, Hospitalization, Other)
  Sender: FDA-Public Use
  Company Number: BR-PFIZER INC-2017222200

PATIENT
  Age: 81 Year
  Sex: Female
  Weight: 53 kg

DRUGS (6)
  1. ADRIBLASTINA [Suspect]
     Active Substance: DOXORUBICIN HYDROCHLORIDE
     Indication: NON-HODGKIN^S LYMPHOMA
     Dosage: 74.55 MG, CYCLIC
     Route: 042
     Dates: start: 20170213, end: 20170213
  2. FAULDVINCRI [Suspect]
     Active Substance: VINCRISTINE SULFATE
     Dosage: 2 MG, CYCLIC
     Route: 042
     Dates: start: 20170213
  3. MABTHERA [Suspect]
     Active Substance: RITUXIMAB
     Indication: NON-HODGKIN^S LYMPHOMA
     Dosage: 559.125 MG, CYCLIC
     Route: 042
     Dates: start: 20170213
  4. EQUITAM [Concomitant]
     Dosage: UNK
  5. GENUXAL [Suspect]
     Active Substance: CYCLOPHOSPHAMIDE
     Dosage: 1118.25 MG, CYCLIC
     Route: 042
     Dates: start: 20170213
  6. PURAN [Concomitant]
     Active Substance: LEVOTHYROXINE SODIUM
     Dosage: UNK

REACTIONS (11)
  - Diarrhoea [Unknown]
  - Gastrointestinal haemorrhage [Unknown]
  - Somnolence [Unknown]
  - Febrile neutropenia [Unknown]
  - Anaemia [Unknown]
  - Infection [Recovering/Resolving]
  - Fluid intake reduced [Unknown]
  - Death [Fatal]
  - General physical health deterioration [Unknown]
  - Hyponatraemia [Unknown]
  - Thrombocytopenia [Unknown]

NARRATIVE: CASE EVENT DATE: 201702
